FAERS Safety Report 9273271 (Version 4)
Quarter: 2013Q3

REPORT INFORMATION
  Report Type: Spontaneous
  Country: US (occurrence: US)
  Receive Date: 20130506
  Receipt Date: 20130807
  Transmission Date: 20140515
  Serious: Yes (Other)
  Sender: FDA-Public Use
  Company Number: US-AMGEN-USASP2013027520

PATIENT
  Age: 70 Year
  Sex: Male
  Weight: 113.65 kg

DRUGS (7)
  1. ENBREL [Suspect]
     Indication: RHEUMATOID ARTHRITIS
     Dosage: 50 MG, EVERY WEEK
     Route: 058
     Dates: start: 20130310, end: 20130705
  2. CIALIS [Concomitant]
     Dosage: 20 MG, AS DIRECTED, 4 TAB, RFL:2
     Route: 048
  3. FOLIC ACID [Concomitant]
     Dosage: 1 MG, 1 TAB DAILY DISP:30, RFL:3
  4. METHOTREXATE [Concomitant]
     Dosage: 2.5 MG, 4 TAB EVERY WEEK FOR 1ST WEEK AND THEN 5 PILLS EVERY WEEK FOR 2ND WEEK AND THE 6 PILLS EVERY
     Route: 048
  5. METOPROLOL SUCCINATE [Concomitant]
     Dosage: 50 MG, TB24, ONE TAB TWICE DAILY
     Route: 048
  6. PRAVASTATIN SODIUM [Concomitant]
     Dosage: 20 MG, 1 TAB AT BEDTIME
     Route: 048
  7. TRIAMTERENE/HCTZ [Concomitant]
     Dosage: 75-50 MG, 1/2 TAB DAILY
     Route: 048

REACTIONS (7)
  - Candida infection [Recovering/Resolving]
  - Joint swelling [Unknown]
  - Asthenia [Not Recovered/Not Resolved]
  - Arthralgia [Not Recovered/Not Resolved]
  - Penile pain [Recovering/Resolving]
  - Fungal infection [Recovered/Resolved]
  - Localised infection [Unknown]
